FAERS Safety Report 5241276-0 (Version None)
Quarter: 2007Q2

REPORT INFORMATION
  Report Type: 
  Country: None (occurrence: None)
  Receive Date: 20070220
  Receipt Date: 20070209
  Transmission Date: 20071010
  Serious: Yes (Hospitalization)
  Sender: FDA-Public Use
  Company Number: US-JNJFOC-20060902332

PATIENT
  Age: 49 Year
  Sex: Male

DRUGS (48)
  1. TMC114 [Suspect]
     Route: 048
  2. TMC114 [Suspect]
     Indication: HIV INFECTION
     Route: 048
  3. RITONAVIR [Suspect]
     Route: 048
     Dates: start: 20060721, end: 20060903
  4. RITONAVIR [Suspect]
     Indication: HIV INFECTION
     Route: 048
     Dates: start: 20060721, end: 20060903
  5. MK0518 [Suspect]
     Route: 048
  6. MK0518 [Suspect]
     Indication: HIV INFECTION
     Route: 048
  7. LAMIVUDINE [Suspect]
     Indication: HIV INFECTION
     Route: 048
  8. TENOFOVIR [Suspect]
     Route: 048
  9. TENOFOVIR [Suspect]
     Indication: HIV INFECTION
     Route: 048
  10. ENFUVIRTIDE [Suspect]
     Route: 058
  11. ENFUVIRTIDE [Suspect]
     Indication: HIV INFECTION
     Route: 058
  12. TIPRANAVIR [Concomitant]
     Indication: HIV INFECTION
     Route: 065
  13. TESTOSTERONE [Concomitant]
     Route: 065
  14. ACETAMINOPHEN [Concomitant]
     Route: 065
  15. ACYCLOVIR [Concomitant]
     Route: 065
  16. ELAVIL [Concomitant]
     Route: 065
  17. JUVEN [Concomitant]
     Route: 065
  18. ASCORBIC ACID [Concomitant]
     Route: 065
  19. NEOSPORIN [Concomitant]
     Route: 065
  20. CYANOCOBALAMIN [Concomitant]
     Route: 065
  21. VALIUM [Concomitant]
     Route: 065
  22. CARTIA XT [Concomitant]
     Route: 065
  23. BENADRYL [Concomitant]
     Route: 065
  24. NEXIUM [Concomitant]
     Route: 065
  25. PEPCID AC [Concomitant]
     Route: 065
  26. MEDROL [Concomitant]
     Route: 065
  27. IBUPROFEN [Concomitant]
     Route: 065
  28. INDAPAMIDE [Concomitant]
     Route: 065
  29. LACTAID [Concomitant]
     Route: 065
  30. LAMICTAL [Concomitant]
     Route: 065
  31. IMODIUM [Concomitant]
     Route: 065
  32. METHYLPREDNISOLONE 16MG TAB [Concomitant]
     Route: 065
  33. SOLU-MEDROL [Concomitant]
     Route: 065
  34. MIRTAZAPINE [Concomitant]
     Route: 065
  35. ZYPREXA [Concomitant]
     Route: 065
  36. PYRIDIUM [Concomitant]
     Route: 065
  37. PREDNISONE [Concomitant]
     Route: 065
  38. ZOLOFT [Concomitant]
     Route: 065
  39. VIAGRA [Concomitant]
     Route: 065
  40. BACTRIM [Concomitant]
     Route: 065
  41. VITAMIN [Concomitant]
     Route: 065
  42. AMBIEN [Concomitant]
     Route: 065
  43. TAGAMET [Concomitant]
     Route: 065
  44. CODEINE [Concomitant]
     Route: 065
  45. RIFAXIMIN [Concomitant]
     Indication: COLITIS
     Route: 048
  46. HYDROCORTISONE [Concomitant]
     Route: 065
  47. CLONAZEPAM [Concomitant]
     Route: 065
  48. FLUCONAZOLE [Concomitant]
     Route: 065

REACTIONS (15)
  - ANAEMIA [None]
  - CULTURE URINE POSITIVE [None]
  - DEHYDRATION [None]
  - DEPRESSION [None]
  - DRUG HYPERSENSITIVITY [None]
  - DYSPNOEA [None]
  - HEPATITIS [None]
  - HYPERSENSITIVITY [None]
  - IMMUNE RECONSTITUTION SYNDROME [None]
  - MAJOR DEPRESSION [None]
  - RENAL FAILURE [None]
  - RETROVIRAL INFECTION [None]
  - SKIN EXFOLIATION [None]
  - STREPTOCOCCAL INFECTION [None]
  - SYNCOPE [None]
